FAERS Safety Report 20838699 (Version 1)
Quarter: 2022Q2

REPORT INFORMATION
  Report Type: Spontaneous
  Country: US (occurrence: None)
  Receive Date: 20220516
  Receipt Date: 20220516
  Transmission Date: 20220721
  Serious: Yes (Other)
  Sender: FDA-Public Use
  Company Number: None

PATIENT
  Age: 34 Year
  Sex: Male
  Weight: 83.25 kg

DRUGS (1)
  1. XELJANZ [Suspect]
     Active Substance: TOFACITINIB CITRATE

REACTIONS (4)
  - Lymphadenopathy [None]
  - Necrotic lymphadenopathy [None]
  - Lymphadenopathy [None]
  - Metastatic squamous cell carcinoma [None]

NARRATIVE: CASE EVENT DATE: 20220401
